FAERS Safety Report 7382980-8 (Version None)
Quarter: 2011Q1

REPORT INFORMATION
  Report Type: 
  Country: None (occurrence: None)
  Receive Date: 20110330
  Receipt Date: 20110318
  Transmission Date: 20110831
  Serious: Yes (Hospitalization)
  Sender: FDA-Public Use
  Company Number: CO-RANBAXY-2011RR-41259

PATIENT
  Age: 27 Year
  Sex: Male

DRUGS (7)
  1. MIRTAZAPINE [Suspect]
     Indication: SUICIDE ATTEMPT
     Route: 048
  2. RUPATADINE [Suspect]
     Indication: SUICIDE ATTEMPT
     Dosage: 10 MG, UNK
     Route: 048
  3. CIPROFLOXACIN [Suspect]
     Indication: SUICIDE ATTEMPT
     Route: 048
  4. DEXKETOPROFEN [Suspect]
     Indication: SUICIDE ATTEMPT
     Dosage: 25 MG, UNK
     Route: 048
  5. DIAZEPAM [Suspect]
     Indication: SUICIDE ATTEMPT
     Dosage: 10 MG, UNK
     Route: 048
  6. FLURAZEPAM [Suspect]
     Indication: SUICIDE ATTEMPT
     Dosage: 30 MG, UNK
     Route: 048
  7. IBUPROFEN [Suspect]
     Indication: SUICIDE ATTEMPT
     Dosage: 600 MG, UNK
     Route: 048

REACTIONS (3)
  - OVERDOSE [None]
  - RENAL FAILURE ACUTE [None]
  - ELECTROCARDIOGRAM QT PROLONGED [None]
